FAERS Safety Report 23647182 (Version 1)
Quarter: 2024Q1

REPORT INFORMATION
  Report Type: Spontaneous
  Country: US (occurrence: US)
  Receive Date: 20240319
  Receipt Date: 20240319
  Transmission Date: 20240410
  Serious: No
  Sender: FDA-Public Use
  Company Number: US-BoehringerIngelheim-2024-BI-015874

PATIENT
  Age: 91 Year
  Sex: Female

DRUGS (1)
  1. GILOTRIF [Suspect]
     Active Substance: AFATINIB
     Indication: Product used for unknown indication
     Dates: start: 20240315

REACTIONS (3)
  - Rash pruritic [Unknown]
  - Pharyngeal inflammation [Unknown]
  - Ear inflammation [Unknown]

NARRATIVE: CASE EVENT DATE: 20240316
